FAERS Safety Report 8815512 (Version 2)
Quarter: 2012Q4

REPORT INFORMATION
  Report Type: 
  Country: JP (occurrence: JP)
  Receive Date: 20120928
  Receipt Date: 20121206
  Transmission Date: 20130627
  Serious: Yes (Other)
  Sender: FDA-Public Use
  Company Number: JP-B.I. PHARMACEUTICALS,INC./RIDGEFIELD-2012-BP-12526NB

PATIENT
  Sex: Male
  Weight: 74 kg

DRUGS (5)
  1. PRAZAXA [Suspect]
     Indication: ATRIAL FIBRILLATION
     Dosage: 220 mg
     Route: 048
     Dates: start: 20110323, end: 20120306
  2. SELECTOL [Concomitant]
     Route: 065
  3. BLOPRESS [Concomitant]
     Route: 065
  4. OMEPRAL [Concomitant]
     Route: 065
  5. CLARITIN [Concomitant]
     Route: 065

REACTIONS (1)
  - Eosinophilic pneumonia [Recovered/Resolved]
